FAERS Safety Report 12679358 (Version 2)
Quarter: 2016Q4

REPORT INFORMATION
  Report Type: Report from Study
  Country: DE (occurrence: DE)
  Receive Date: 20160824
  Receipt Date: 20161013
  Transmission Date: 20170207
  Serious: Yes (Hospitalization)
  Sender: FDA-Public Use
  Company Number: DE-ROCHE-1818762

PATIENT
  Age: 69 Year
  Sex: Female
  Weight: 77 kg

DRUGS (24)
  1. TOREM [Concomitant]
     Active Substance: TORSEMIDE
     Indication: POLYURIA
     Dosage: 10 MG, 1-1/2-0, FREQUENCY TIME: DAYS
     Route: 048
     Dates: start: 20160718, end: 20160829
  2. 5-FLUOROURACIL [Suspect]
     Active Substance: FLUOROURACIL
     Dosage: DOSE: 320-360 MG
     Route: 040
     Dates: start: 20160816, end: 20160927
  3. ALDACTONE [Concomitant]
     Active Substance: SPIRONOLACTONE
     Indication: ASCITES
  4. BEVACIZUMAB [Suspect]
     Active Substance: BEVACIZUMAB
     Indication: COLORECTAL CANCER METASTATIC
     Route: 042
     Dates: start: 20160725
  5. 5-FLUOROURACIL [Suspect]
     Active Substance: FLUOROURACIL
     Indication: COLORECTAL CANCER METASTATIC
     Dosage: DOSE: 1900-3025 MG
     Route: 041
     Dates: start: 20160725
  6. 5-FLUOROURACIL [Suspect]
     Active Substance: FLUOROURACIL
     Route: 040
     Dates: start: 20160725
  7. POTASSIUM CHLORIDE. [Concomitant]
     Active Substance: POTASSIUM CHLORIDE
     Indication: HYPOKALAEMIA
     Dosage: 40 MVAL
     Route: 042
     Dates: start: 20160630, end: 20160630
  8. POTASSIUM CHLORIDE. [Concomitant]
     Active Substance: POTASSIUM CHLORIDE
     Dosage: 40 MVAL
     Route: 042
     Dates: start: 20160912, end: 20160912
  9. BEVACIZUMAB [Suspect]
     Active Substance: BEVACIZUMAB
     Route: 042
     Dates: start: 20160927, end: 20160927
  10. GRANISETRON [Concomitant]
     Active Substance: GRANISETRON
     Dosage: ON CHEMOTHERAPY DAYS
     Route: 042
     Dates: start: 20160725
  11. SPIRONOLACTON [Concomitant]
     Active Substance: SPIRONOLACTONE
     Indication: OEDEMA
     Dosage: 1-0-0
     Route: 048
     Dates: start: 20160804
  12. FOLINIC ACID [Concomitant]
     Active Substance: LEUCOVORIN
     Indication: COLORECTAL CANCER
     Dosage: 320-500 MG
     Route: 042
     Dates: start: 20160725, end: 20160927
  13. TOREM [Concomitant]
     Active Substance: TORSEMIDE
     Route: 048
     Dates: start: 20160830
  14. FORTIMEL [Concomitant]
     Active Substance: DIETARY SUPPLEMENT
     Indication: DECREASED APPETITE
     Dosage: AS REQUIRED
     Route: 048
     Dates: start: 20160719
  15. LOPEDIUM [Concomitant]
     Active Substance: LOPERAMIDE
     Dosage: 18-JUL-2016
     Route: 048
  16. MCP [Concomitant]
     Active Substance: METOCLOPRAMIDE HYDROCHLORIDE
     Route: 048
     Dates: start: 20160718
  17. ALDACTONE [Concomitant]
     Active Substance: SPIRONOLACTONE
     Indication: OEDEMA
     Route: 048
     Dates: start: 20160830
  18. OXALIPLATIN. [Concomitant]
     Active Substance: OXALIPLATIN
     Indication: COLORECTAL CANCER
     Dosage: 95-153 MG
     Route: 042
     Dates: start: 20160725, end: 20160927
  19. PANTOPRAZOL [Concomitant]
     Active Substance: PANTOPRAZOLE SODIUM
     Route: 048
  20. FERRLECIT [Concomitant]
     Active Substance: SODIUM FERRIC GLUCONATE COMPLEX
     Indication: HYPOCHROMIC ANAEMIA
     Route: 048
     Dates: start: 20160718
  21. FORTECORTIN [Concomitant]
     Active Substance: DEXAMETHASONE
     Dosage: 4 MG, 2-0-0
     Route: 048
     Dates: start: 20160725
  22. CLEXANE [Concomitant]
     Active Substance: ENOXAPARIN SODIUM
     Route: 058
     Dates: end: 20160803
  23. GRANISETRON [Concomitant]
     Active Substance: GRANISETRON
     Dosage: 1-0-0, DAY 2 AND 3 OF CHEMOTHERAPY
     Route: 048
     Dates: start: 20160725
  24. MELPERON [Concomitant]
     Active Substance: MELPERONE
     Indication: DEPRESSION
     Route: 048
     Dates: start: 20160804

REACTIONS (2)
  - Deep vein thrombosis [Not Recovered/Not Resolved]
  - Oesophagitis haemorrhagic [Not Recovered/Not Resolved]

NARRATIVE: CASE EVENT DATE: 20160804
